FAERS Safety Report 5135531-2 (Version None)
Quarter: 2006Q4

REPORT INFORMATION
  Report Type: 
  Country: None (occurrence: None)
  Receive Date: 20061024
  Receipt Date: 20061024
  Transmission Date: 20070319
  Serious: Yes (Other)
  Sender: FDA-Public Use
  Company Number: None

PATIENT
  Age: 72 Year
  Sex: Male
  Weight: 102.5129 kg

DRUGS (2)
  1. TAXOTERE [Suspect]
     Indication: BLADDER CANCER
     Dosage: 75 MG Q WEEK IV
     Route: 042
     Dates: start: 20060926, end: 20060926
  2. TAXOTERE [Suspect]
     Indication: BLADDER CANCER
     Dosage: 75 MG Q WEEK IV
     Route: 042
     Dates: start: 20061003, end: 20061003

REACTIONS (2)
  - RASH ERYTHEMATOUS [None]
  - STOMATITIS [None]
